FAERS Safety Report 15958028 (Version 3)
Quarter: 2019Q2

REPORT INFORMATION
  Report Type: Spontaneous
  Country: CA (occurrence: CA)
  Receive Date: 20190213
  Receipt Date: 20190416
  Transmission Date: 20190711
  Serious: Yes (Other)
  Sender: FDA-Public Use
  Company Number: CA-PFIZER INC-2019059701

PATIENT
  Age: 35 Year
  Sex: Female

DRUGS (1)
  1. ELELYSO [Suspect]
     Active Substance: TALIGLUCERASE ALFA
     Indication: GAUCHER^S DISEASE
     Dosage: 2400 IU, EVERY 2 WEEK
     Route: 042
     Dates: start: 20190117

REACTIONS (5)
  - Chest pain [Unknown]
  - Palpitations [Unknown]
  - Nausea [Unknown]
  - Hypertension [Unknown]
  - Tachycardia [Unknown]
